FAERS Safety Report 13822673 (Version 1)
Quarter: 2017Q3

REPORT INFORMATION
  Report Type: Spontaneous
  Country: DK (occurrence: DK)
  Receive Date: 20170801
  Receipt Date: 20170801
  Transmission Date: 20171127
  Serious: Yes (Other)
  Sender: FDA-Public Use
  Company Number: DK-TEVA-789540ACC

PATIENT
  Age: 61 Year
  Sex: Male

DRUGS (1)
  1. TERBINAFINE ^ACTAVIS^ [Suspect]
     Active Substance: TERBINAFINE
     Indication: ONYCHOMYCOSIS
     Route: 048
     Dates: start: 20170522, end: 20170603

REACTIONS (2)
  - Amylase increased [Recovered/Resolved]
  - Pancreatitis [Recovered/Resolved]

NARRATIVE: CASE EVENT DATE: 20170703
